FAERS Safety Report 6102904-0 (Version None)
Quarter: 2009Q1

REPORT INFORMATION
  Report Type: 
  Country: None (occurrence: None)
  Receive Date: 20090303
  Receipt Date: 20090303
  Transmission Date: 20090719
  Serious: Yes (Life-Threatening, Hospitalization, Disabling)
  Sender: FDA-Public Use
  Company Number: None

PATIENT
  Sex: Female
  Weight: 58.9676 kg

DRUGS (1)
  1. GEODON [Suspect]
     Indication: SCHIZOAFFECTIVE DISORDER
     Dosage: 80 MG BID PO AT LEAST ONE YEAR 20 MG QHS PO SEVERAL MONTHS
     Route: 048

REACTIONS (7)
  - CARDIAC FLUTTER [None]
  - DYSPNOEA [None]
  - ELECTROCARDIOGRAM QT PROLONGED [None]
  - LEAD DISLODGEMENT [None]
  - LOSS OF CONSCIOUSNESS [None]
  - PAIN [None]
  - VENTRICULAR TACHYCARDIA [None]
